FAERS Safety Report 16098309 (Version 1)
Quarter: 2019Q1

REPORT INFORMATION
  Report Type: Spontaneous
  Country: US (occurrence: US)
  Receive Date: 20190321
  Receipt Date: 20190321
  Transmission Date: 20190418
  Serious: No
  Sender: FDA-Public Use
  Company Number: US-TEVA-2019-US-1018085

PATIENT
  Age: 60 Year
  Sex: Female
  Weight: 72.57 kg

DRUGS (6)
  1. CELECOXIB TEVA [Suspect]
     Active Substance: CELECOXIB
     Indication: PROPHYLAXIS
     Dosage: 400 MILLIGRAM DAILY; ONGOING, 200MG CAPSULES ONCE IN MORNING AND ONCE AT NIGHT WITH FOOD
     Dates: start: 20170928
  2. TRIAMTERENE HCTZ SANZOZ [Suspect]
     Active Substance: HYDROCHLOROTHIAZIDE\TRIAMTERENE
     Indication: FLUID RETENTION
     Dosage: ONGOING, DOSE 37.5/25MG, 0.5-1 EVERY OTHER DAY
  3. XARELTO [Concomitant]
     Active Substance: RIVAROXABAN
     Indication: ANTICOAGULANT THERAPY
     Dosage: 10 MILLIGRAM DAILY; ON MEDICINE FOR 58 DAYS. HAS NOT TAKEN HER LAST TWO TABLETS.
     Route: 048
     Dates: start: 20170928
  4. HYDROMORPHONE HCL MALLINCKRODT [Concomitant]
     Indication: PAIN
     Dosage: DOSE 2 MG, ONLY TOOK FOR 3 DAYS, STOPPED DUE TO NAUSEA, EXTREME VOMITING AND HEADACHES
     Dates: start: 20170928, end: 20171001
  5. SUMATRIPTAN NORTHSTAR [Suspect]
     Active Substance: SUMATRIPTAN
     Indication: MIGRAINE
     Dosage: 50MG TABLET, TAKE 1 EVERY TWO HOURS BY MOUTH AS NEEDED MAXIMUM 200MG IN 24 HOURS
     Route: 048
  6. FAMOTIDINE IVAX [Concomitant]
     Dosage: 40 MILLIGRAM DAILY; ONGOING, TAKES WITH CELECOXIB. BEEN ON FAMOTIDINE FOR 60 DAYS
     Route: 048
     Dates: start: 20170928

REACTIONS (4)
  - Dyspnoea [Unknown]
  - Erythema [Recovering/Resolving]
  - Hot flush [Recovering/Resolving]
  - Chest discomfort [Unknown]

NARRATIVE: CASE EVENT DATE: 20171023
